FAERS Safety Report 7248845-7 (Version None)
Quarter: 2011Q1

REPORT INFORMATION
  Report Type: 
  Country: None (occurrence: None)
  Receive Date: 20110128
  Receipt Date: 20090731
  Transmission Date: 20110831
  Serious: Yes (Other)
  Sender: FDA-Public Use
  Company Number: US-BAYER-200919928NA

PATIENT
  Sex: Female
  Weight: 90 kg

DRUGS (23)
  1. OPTIMARK [Suspect]
     Indication: NUCLEAR MAGNETIC RESONANCE IMAGING
  2. LIPITOR [Concomitant]
  3. CALCITRIOL [Concomitant]
  4. DAPSONE [Concomitant]
  5. RENAGEL [Concomitant]
  6. DEPAKOTE [Concomitant]
  7. ARANESP [Concomitant]
  8. CELEXA [Concomitant]
  9. MAGNEVIST [Suspect]
     Indication: ANGIOGRAM
     Dates: start: 20040720, end: 20040720
  10. PROHANCE [Suspect]
     Indication: NUCLEAR MAGNETIC RESONANCE IMAGING
  11. METOPROLOL [Concomitant]
  12. PHOSLO [Concomitant]
  13. SODIUM BICARBONATE [Concomitant]
  14. EPOGEN [Concomitant]
  15. MULTIHANCE [Suspect]
     Indication: NUCLEAR MAGNETIC RESONANCE IMAGING
  16. VALCYTE [Concomitant]
  17. PROGRAF [Concomitant]
  18. NIFEDIPINE [Concomitant]
  19. NIFEREX [Concomitant]
  20. PRILOSEC [Concomitant]
  21. OMNISCAN [Suspect]
     Indication: NUCLEAR MAGNETIC RESONANCE IMAGING
  22. LITHIUM [Concomitant]
     Indication: BIPOLAR DISORDER
     Dates: start: 19760101, end: 19960101
  23. RITUXIMAB [Concomitant]
     Dates: start: 20041101, end: 20041101

REACTIONS (26)
  - SCAR [None]
  - HYPERAEMIA [None]
  - SKIN ATROPHY [None]
  - SKIN LESION [None]
  - SKIN HYPERPIGMENTATION [None]
  - MUSCLE TIGHTNESS [None]
  - PAIN [None]
  - JOINT RANGE OF MOTION DECREASED [None]
  - SKIN TIGHTNESS [None]
  - NEPHROGENIC SYSTEMIC FIBROSIS [None]
  - FIBROSIS [None]
  - DEFORMITY [None]
  - RASH ERYTHEMATOUS [None]
  - SKIN INDURATION [None]
  - MUSCULAR WEAKNESS [None]
  - NODULE [None]
  - BURNING SENSATION [None]
  - GENERAL PHYSICAL HEALTH DETERIORATION [None]
  - OEDEMA [None]
  - RASH PAPULAR [None]
  - MUSCLE ATROPHY [None]
  - MUSCULOSKELETAL STIFFNESS [None]
  - PRURITUS [None]
  - ERYTHEMA [None]
  - MOBILITY DECREASED [None]
  - SKIN DISCOLOURATION [None]
